FAERS Safety Report 21862690 (Version 2)
Quarter: 2023Q1

REPORT INFORMATION
  Report Type: Spontaneous
  Country: IT (occurrence: IT)
  Receive Date: 20230114
  Receipt Date: 20230118
  Transmission Date: 20230417
  Serious: Yes (Life-Threatening)
  Sender: FDA-Public Use
  Company Number: None

PATIENT
  Age: 30 Year
  Sex: Male
  Weight: 110 kg

DRUGS (1)
  1. PIPERACILLIN AND TAZOBACTAM [Suspect]
     Active Substance: PIPERACILLIN SODIUM\TAZOBACTAM SODIUM
     Indication: Cholecystitis
     Dosage: UNK (1 FIALA ENDOVENA DA 4 / 0.5 G)
     Route: 042
     Dates: start: 20221202, end: 20221202

REACTIONS (1)
  - Anaphylactic shock [Recovered/Resolved]

NARRATIVE: CASE EVENT DATE: 20221202
